FAERS Safety Report 15628680 (Version 1)
Quarter: 2018Q4

REPORT INFORMATION
  Report Type: Spontaneous
  Country: US (occurrence: US)
  Receive Date: 20181116
  Receipt Date: 20181116
  Transmission Date: 20190205
  Serious: Yes (Hospitalization)
  Sender: FDA-Public Use
  Company Number: US-MYLANLABS-2018M1086365

PATIENT
  Age: 76 Year
  Sex: Male

DRUGS (1)
  1. SALBUTAMOL [Suspect]
     Active Substance: ALBUTEROL
     Indication: HYPERKALAEMIA
     Route: 042

REACTIONS (8)
  - Anxiety [Unknown]
  - Incorrect route of product administration [Unknown]
  - Accidental overdose [Unknown]
  - Hypotension [Recovering/Resolving]
  - Tachycardia [Recovering/Resolving]
  - Lactic acidosis [Unknown]
  - Shock [Unknown]
  - Tremor [Unknown]
